FAERS Safety Report 7003278-3 (Version None)
Quarter: 2010Q3

REPORT INFORMATION
  Report Type: 
  Country: None (occurrence: None)
  Receive Date: 20100920
  Receipt Date: 20100915
  Transmission Date: 20110219
  Serious: Yes (Hospitalization)
  Sender: FDA-Public Use
  Company Number: BR-PFIZER INC-2010113974

PATIENT
  Age: 60 Year
  Sex: Female
  Weight: 84.5 kg

DRUGS (19)
  1. IBUPROFEN [Suspect]
     Indication: OSTEOARTHRITIS
     Dosage: LOW DOSE
     Route: 048
     Dates: start: 20080520, end: 20100901
  2. NAPROXEN [Suspect]
     Indication: OSTEOARTHRITIS
     Dosage: LOW DOSE
     Route: 048
     Dates: start: 20080520, end: 20100901
  3. BLINDED *NO SUBJECT DRUG [Suspect]
     Indication: OSTEOARTHRITIS
     Dosage: LOW DOSE
     Route: 048
     Dates: start: 20080520, end: 20100901
  4. BLINDED *PLACEBO [Suspect]
     Indication: OSTEOARTHRITIS
     Dosage: LOW DOSE
     Route: 048
     Dates: start: 20080520, end: 20100901
  5. CELECOXIB [Suspect]
     Indication: OSTEOARTHRITIS
     Dosage: LOW DOSE
     Route: 048
     Dates: start: 20080520, end: 20100901
  6. IBUPROFEN [Suspect]
     Dosage: LOW DOSE
     Route: 048
     Dates: start: 20080520, end: 20100901
  7. NAPROXEN [Suspect]
     Dosage: LOW DOSE
     Route: 048
     Dates: start: 20080520, end: 20100901
  8. IBUPROFEN [Suspect]
     Indication: RHEUMATOID ARTHRITIS
  9. NAPROXEN [Suspect]
     Indication: RHEUMATOID ARTHRITIS
  10. BLINDED *NO SUBJECT DRUG [Suspect]
     Indication: RHEUMATOID ARTHRITIS
  11. BLINDED *PLACEBO [Suspect]
     Indication: RHEUMATOID ARTHRITIS
  12. CELECOXIB [Suspect]
     Indication: RHEUMATOID ARTHRITIS
  13. IBUPROFEN [Suspect]
  14. NAPROXEN [Suspect]
  15. NEXIUM [Concomitant]
     Indication: GASTRITIS PROPHYLAXIS
     Dosage: 20 OR 40 MG, DAILY
     Route: 048
     Dates: start: 20080520, end: 20100901
  16. TAPAZOL [Concomitant]
     Indication: HYPERTHYROIDISM
     Dosage: 20 MG, 1X/DAY
     Route: 048
     Dates: start: 19980101
  17. ENALAPRIL [Concomitant]
     Indication: HYPERTENSION
     Dosage: 20 MG, 2X/DAY
     Route: 048
     Dates: start: 20000101
  18. HYDROCHLOROTHIAZIDE [Concomitant]
     Indication: HYPERTENSION
     Dosage: 25 MG, 1X/DAY
     Route: 048
     Dates: start: 20080722
  19. ASPIRIN [Concomitant]
     Indication: CARDIOVASCULAR DISORDER
     Dosage: 100 MG, 1X/DAY
     Route: 048
     Dates: start: 20091029

REACTIONS (1)
  - ANGINA UNSTABLE [None]
